FAERS Safety Report 25628304 (Version 1)
Quarter: 2025Q3

REPORT INFORMATION
  Report Type: Spontaneous
  Country: AR (occurrence: AR)
  Receive Date: 20250731
  Receipt Date: 20250731
  Transmission Date: 20251021
  Serious: Yes (Other)
  Sender: AMGEN
  Company Number: AR-PFIZER INC-202500150017

PATIENT
  Age: 62 Year
  Sex: Female

DRUGS (1)
  1. ENBREL [Suspect]
     Active Substance: ETANERCEPT
     Indication: Rheumatoid arthritis
     Dosage: 50MG, 1 WEEKLY DOSE
     Route: 065
     Dates: start: 20171020, end: 20250722

REACTIONS (3)
  - Gallbladder operation [Not Recovered/Not Resolved]
  - Small intestine operation [Not Recovered/Not Resolved]
  - Lymphoma [Unknown]

NARRATIVE: CASE EVENT DATE: 20250501
